FAERS Safety Report 5701842-2 (Version None)
Quarter: 2008Q2

REPORT INFORMATION
  Report Type: 
  Country: None (occurrence: None)
  Receive Date: 20080408
  Receipt Date: 20080326
  Transmission Date: 20081010
  Serious: Yes (Hospitalization)
  Sender: FDA-Public Use
  Company Number: 230016M08FRA

PATIENT
  Age: 57 Year
  Sex: Female
  Weight: 61 kg

DRUGS (6)
  1. REBIF [Suspect]
     Indication: MULTIPLE SCLEROSIS
     Dates: start: 20030101
  2. BACLOFEN [Concomitant]
  3. FLUOXETINE [Concomitant]
  4. CLONAZEPAM [Concomitant]
  5. BETAHISTINE HYDROCHLRIDE [Concomitant]
  6. FENOFIBRATE [Concomitant]

REACTIONS (3)
  - CARDIAC FAILURE [None]
  - CARDIOMYOPATHY [None]
  - PULMONARY EMBOLISM [None]
